FAERS Safety Report 19442545 (Version 2)
Quarter: 2021Q2

REPORT INFORMATION
  Report Type: Spontaneous
  Country: JP (occurrence: JP)
  Receive Date: 20210621
  Receipt Date: 20210630
  Transmission Date: 20210717
  Serious: Yes (Hospitalization)
  Sender: FDA-Public Use
  Company Number: NVSJ2021JP009330

PATIENT
  Age: 9 Year
  Sex: Female

DRUGS (13)
  1. ILARIS [Suspect]
     Active Substance: CANAKINUMAB
     Indication: STILL^S DISEASE
     Dosage: 100 MG, 4W
     Route: 058
     Dates: start: 201903, end: 201903
  2. PROGRAF [Concomitant]
     Active Substance: TACROLIMUS
     Indication: PRODUCT USED FOR UNKNOWN INDICATION
     Dosage: UNK
     Route: 048
     Dates: start: 201211, end: 201908
  3. ILARIS [Suspect]
     Active Substance: CANAKINUMAB
     Dosage: 4 MG/KG, 4W
     Route: 058
  4. PREDNISOLONE. [Concomitant]
     Active Substance: PREDNISOLONE
     Indication: STILL^S DISEASE
     Dosage: 1.5 MG/KG
     Route: 065
  5. ILARIS [Suspect]
     Active Substance: CANAKINUMAB
     Dosage: 100 MG, 4W
     Route: 058
     Dates: start: 20190404, end: 20190404
  6. ILARIS [Suspect]
     Active Substance: CANAKINUMAB
     Dosage: 100 MG, 4W
     Route: 058
     Dates: start: 20190509, end: 20190509
  7. PREDNISOLONE. [Concomitant]
     Active Substance: PREDNISOLONE
     Dosage: 3?4 MG DAILY
     Route: 065
  8. ILARIS [Suspect]
     Active Substance: CANAKINUMAB
     Dosage: 4 MG/KG, 4W
     Route: 058
  9. ILARIS [Suspect]
     Active Substance: CANAKINUMAB
     Dosage: 110 MG, 4W
     Route: 058
     Dates: start: 20190801, end: 20190801
  10. ILARIS [Suspect]
     Active Substance: CANAKINUMAB
     Dosage: 110 MG, 4W
     Route: 058
     Dates: start: 20190829, end: 20190829
  11. PREDNISOLONE. [Concomitant]
     Active Substance: PREDNISOLONE
     Dosage: UNK
     Route: 065
  12. METHOTREXATE. [Concomitant]
     Active Substance: METHOTREXATE
     Indication: STILL^S DISEASE
     Dosage: UNK
     Route: 048
  13. ILARIS [Suspect]
     Active Substance: CANAKINUMAB
     Dosage: 4 MG/KG, 4W
     Route: 058

REACTIONS (4)
  - Haemophagocytic lymphohistiocytosis [Recovered/Resolved]
  - Pyrexia [Unknown]
  - Haemophagocytic lymphohistiocytosis [Recovered/Resolved]
  - Lymphadenopathy [Unknown]

NARRATIVE: CASE EVENT DATE: 20190418
